APPROVED DRUG PRODUCT: CAPTOPRIL
Active Ingredient: CAPTOPRIL
Strength: 50MG
Dosage Form/Route: TABLET;ORAL
Application: A214442 | Product #003 | TE Code: AB
Applicant: AIPING PHARMACEUTICAL INC
Approved: Jan 27, 2023 | RLD: No | RS: No | Type: RX